FAERS Safety Report 8566021-2 (Version None)
Quarter: 2012Q3

REPORT INFORMATION
  Report Type: 
  Country: None (occurrence: None)
  Receive Date: 20120803
  Receipt Date: 20110823
  Transmission Date: 20120928
  Serious: No
  Sender: FDA-Public Use
  Company Number: US-ABBOTT-11P-163-0848676-00

PATIENT
  Sex: Female
  Weight: 86.26 kg

DRUGS (8)
  1. NIASPAN [Suspect]
     Indication: BLOOD CHOLESTEROL
  2. METOPROLOL TARTRATE [Concomitant]
     Indication: PRODUCT USED FOR UNKNOWN INDICATION
  3. SYNTHROID [Concomitant]
     Indication: PRODUCT USED FOR UNKNOWN INDICATION
  4. LASIX [Concomitant]
     Indication: PRODUCT USED FOR UNKNOWN INDICATION
     Dosage: 40-60MG/DAY
  5. COUMADIN [Concomitant]
     Indication: PRODUCT USED FOR UNKNOWN INDICATION
  6. QUINAPRIL [Concomitant]
     Indication: PRODUCT USED FOR UNKNOWN INDICATION
  7. DIOXIN [Concomitant]
     Indication: PRODUCT USED FOR UNKNOWN INDICATION
  8. VITAMIN D [Concomitant]
     Indication: PRODUCT USED FOR UNKNOWN INDICATION

REACTIONS (4)
  - FLUSHING [None]
  - PAIN OF SKIN [None]
  - ARTHRALGIA [None]
  - VISION BLURRED [None]
